FAERS Safety Report 14931259 (Version 1)
Quarter: 2018Q2

REPORT INFORMATION
  Report Type: Spontaneous
  Country: US (occurrence: US)
  Receive Date: 20180524
  Receipt Date: 20180524
  Transmission Date: 20180711
  Serious: Yes (Hospitalization, Other)
  Sender: FDA-Public Use
  Company Number: US-009507513-1805USA007623

PATIENT
  Age: 53 Year
  Sex: Male
  Weight: 75.28 kg

DRUGS (1)
  1. KEYTRUDA [Suspect]
     Active Substance: PEMBROLIZUMAB
     Indication: OESOPHAGEAL CARCINOMA
     Dosage: 200 MG, Q3W
     Route: 042
     Dates: start: 20171127, end: 20171211

REACTIONS (4)
  - Clostridium difficile infection [Unknown]
  - Pneumonia [Unknown]
  - Product use in unapproved indication [Unknown]
  - Pneumonitis [Unknown]

NARRATIVE: CASE EVENT DATE: 20171127
